FAERS Safety Report 7226248-9 (Version None)
Quarter: 2011Q1

REPORT INFORMATION
  Report Type: 
  Country: None (occurrence: None)
  Receive Date: 20110114
  Receipt Date: 20110105
  Transmission Date: 20110831
  Serious: Yes (Other)
  Sender: FDA-Public Use
  Company Number: PHHY2011JP01467

PATIENT
  Age: 12 Year
  Sex: Female

DRUGS (2)
  1. CYCLOSPORINE [Suspect]
     Indication: NEPHROTIC SYNDROME
     Route: 048
  2. METHYLPREDNISOLONE ACETATE [Concomitant]
     Indication: NEPHROTIC SYNDROME

REACTIONS (2)
  - CHORIORETINITIS [None]
  - CATARACT SUBCAPSULAR [None]
